FAERS Safety Report 5621703-7 (Version None)
Quarter: 2008Q1

REPORT INFORMATION
  Report Type: 
  Country: None (occurrence: None)
  Receive Date: 20080211
  Receipt Date: 20080206
  Transmission Date: 20080703
  Serious: Yes (Other)
  Sender: FDA-Public Use
  Company Number: PHNU2007DE04249

PATIENT
  Age: 66 Year
  Sex: Female
  Weight: 64 kg

DRUGS (4)
  1. ZOMETA [Suspect]
     Dosage: 4 MG, QMO
     Route: 042
     Dates: start: 20051230, end: 20070817
  2. AROMASIN [Concomitant]
     Route: 065
     Dates: start: 20060120, end: 20060212
  3. AROMASIN [Concomitant]
     Route: 065
     Dates: start: 20060225, end: 20060328
  4. FASLODEX [Concomitant]
     Route: 065
     Dates: start: 20060701

REACTIONS (10)
  - ACANTHOSIS [None]
  - BIOPSY SITE UNSPECIFIED ABNORMAL [None]
  - BONE DISORDER [None]
  - BREATH ODOUR [None]
  - DENTAL TREATMENT [None]
  - EXCESSIVE GRANULATION TISSUE [None]
  - INFLAMMATION [None]
  - OSTEONECROSIS [None]
  - PERIODONTITIS [None]
  - POLYP [None]
